FAERS Safety Report 9579229 (Version 1)
Quarter: 2013Q4

REPORT INFORMATION
  Report Type: Spontaneous
  Country: US (occurrence: US)
  Receive Date: 20131001
  Receipt Date: 20131001
  Transmission Date: 20140711
  Serious: No
  Sender: FDA-Public Use
  Company Number: US-AMGEN-USASP2013017444

PATIENT
  Age: 59 Year
  Sex: Male

DRUGS (8)
  1. ENBREL [Suspect]
     Indication: PRODUCT USED FOR UNKNOWN INDICATION
     Dosage: 50 MG, QWK
     Route: 058
  2. MICARDIS [Concomitant]
     Dosage: 20 MG, UNK
  3. HYDROCHLOROTH [Concomitant]
     Dosage: 12.5 MG, UNK
  4. NEXIUM                             /01479302/ [Concomitant]
     Dosage: 20 MG, UNK
  5. LORCET 10/650 [Concomitant]
     Dosage: UNK
  6. METHOTREXATE [Concomitant]
     Dosage: 2.5 MG, UNK
  7. TRAZODONE [Concomitant]
     Dosage: 50 MG, UNK
  8. MELOXICAM [Concomitant]
     Dosage: 7.5 MG, UNK

REACTIONS (1)
  - Influenza like illness [Unknown]
